FAERS Safety Report 12732899 (Version 1)
Quarter: 2016Q3

REPORT INFORMATION
  Report Type: Spontaneous
  Country: US (occurrence: US)
  Receive Date: 20160912
  Receipt Date: 20160912
  Transmission Date: 20161109
  Serious: No
  Sender: FDA-Public Use
  Company Number: US-TEVA-684944ACC

PATIENT
  Age: 41 Year
  Sex: Female
  Weight: 56.75 kg

DRUGS (2)
  1. PLAN B ONE-STEP [Suspect]
     Active Substance: LEVONORGESTREL
     Indication: POST COITAL CONTRACEPTION
     Dates: start: 20160809, end: 20160809
  2. ALPRAZOLAM. [Concomitant]
     Active Substance: ALPRAZOLAM
     Indication: ANXIETY

REACTIONS (13)
  - Paraesthesia [Unknown]
  - Abdominal pain upper [Unknown]
  - Abdominal pain lower [Unknown]
  - Mydriasis [Unknown]
  - Dehydration [Unknown]
  - Heart rate abnormal [Unknown]
  - Diarrhoea [Not Recovered/Not Resolved]
  - Vomiting [Recovered/Resolved]
  - Breast swelling [Unknown]
  - Dizziness [Unknown]
  - Abdominal distension [Unknown]
  - Balance disorder [Unknown]
  - Amenorrhoea [Unknown]

NARRATIVE: CASE EVENT DATE: 20160809
